FAERS Safety Report 9103139 (Version 1)
Quarter: 2013Q1

REPORT INFORMATION
  Report Type: Spontaneous
  Country: AU (occurrence: None)
  Receive Date: 20130125
  Receipt Date: 20130125
  Transmission Date: 20140127
  Serious: Yes (Hospitalization)
  Sender: FDA-Public Use
  Company Number: ABR_00794_2013

PATIENT
  Age: 51 Year
  Sex: 0

DRUGS (13)
  1. E-MYCIN [Suspect]
     Indication: PRODUCT USED FOR UNKNOWN INDICATION
  2. ATACAND HYDROCHLOROTHIAZIDE [Suspect]
     Indication: PRODUCT USED FOR UNKNOWN INDICATION
     Route: 048
  3. LITHIUM CARBONATE [Suspect]
     Indication: PRODUCT USED FOR UNKNOWN INDICATION
  4. SOLONE [Suspect]
     Indication: PRODUCT USED FOR UNKNOWN INDICATION
  5. BUDESONIDE [Suspect]
     Indication: PRODUCT USED FOR UNKNOWN INDICATION
     Route: 045
  6. SYMBICORT [Suspect]
     Indication: PRODUCT USED FOR UNKNOWN INDICATION
     Route: 055
  7. QUETIAPINE (QUETIAPINE) (QUETIAPINE) [Suspect]
     Indication: PRODUCT USED FOR UNKNOWN INDICATION
  8. YASMIN [Suspect]
     Indication: PRODUCT USED FOR UNKNOWN INDICATION
  9. EUTROXSIG [Suspect]
     Indication: PRODUCT USED FOR UNKNOWN INDICATION
  10. KALMA (ALPRAZOLAM OR TRYPTOPHAN) [Suspect]
     Indication: PRODUCT USED FOR UNKNOWN INDICATION
  11. QUINAPRIL HYDROCHLORIDE [Concomitant]
  12. MIRTAZAPINE [Concomitant]
  13. PRISTIQ [Concomitant]

REACTIONS (5)
  - Toxicity to various agents [None]
  - Drug interaction [None]
  - Electrolyte imbalance [None]
  - Electrocardiogram QT prolonged [None]
  - Blood potassium decreased [None]
